FAERS Safety Report 5975069-3 (Version None)
Quarter: 2008Q4

REPORT INFORMATION
  Report Type: 
  Country: None (occurrence: None)
  Receive Date: 20081202
  Receipt Date: 20081111
  Transmission Date: 20090506
  Serious: Yes (Death, Hospitalization)
  Sender: FDA-Public Use
  Company Number: ES-BAYER-200716366GDS

PATIENT
  Age: 58 Year
  Sex: Male

DRUGS (10)
  1. SORAFENIB [Suspect]
     Indication: RENAL CELL CARCINOMA
     Route: 048
     Dates: start: 20060215, end: 20071105
  2. OMEPRAZOLE [Concomitant]
     Indication: PROPHYLAXIS
     Route: 048
     Dates: start: 20060421
  3. IBUPROFEN [Concomitant]
     Indication: PAIN
     Route: 048
     Dates: start: 20060516
  4. CLORAZEPATE DIPOTASSIUM [Concomitant]
     Indication: ANXIETY
     Route: 048
     Dates: start: 20060701
  5. DICLOFENAC SODIUM [Concomitant]
     Indication: PAIN
     Route: 048
     Dates: start: 20061023
  6. METAMIZOL [Concomitant]
     Indication: PAIN
     Route: 048
     Dates: start: 20061025
  7. ENALAPRIL MALEATE [Concomitant]
     Indication: HYPERTENSION
     Route: 048
     Dates: start: 20061025
  8. TRAMADOL HCL [Concomitant]
     Indication: PAIN
     Route: 048
     Dates: start: 20070410
  9. DACORTIN [Concomitant]
     Indication: PAIN
     Route: 048
     Dates: start: 20070715
  10. INACID [Concomitant]
     Indication: PAIN
     Route: 048
     Dates: start: 20070912

REACTIONS (2)
  - INTERVERTEBRAL DISC PROTRUSION [None]
  - SUDDEN DEATH [None]
